FAERS Safety Report 8338004-9 (Version None)
Quarter: 2012Q2

REPORT INFORMATION
  Report Type: 
  Country: None (occurrence: None)
  Receive Date: 20120504
  Receipt Date: 20120426
  Transmission Date: 20120825
  Serious: No
  Sender: FDA-Public Use
  Company Number: US-JNJFOC-20120412662

PATIENT
  Sex: Male
  Weight: 117.94 kg

DRUGS (13)
  1. DURAGESIC-100 [Suspect]
     Route: 062
     Dates: start: 20120301
  2. DURAGESIC-100 [Suspect]
     Route: 062
     Dates: start: 20120301
  3. TYLENOL W/ CODEINE NO. 3 [Suspect]
     Indication: BREAKTHROUGH PAIN
     Dosage: AS NECESSARY
     Route: 048
     Dates: start: 20110101
  4. DURAGESIC-100 [Suspect]
     Route: 062
     Dates: start: 20110101, end: 20110101
  5. DURAGESIC-100 [Suspect]
     Indication: NECK PAIN
     Route: 062
     Dates: start: 20110101, end: 20110101
  6. DURAGESIC-100 [Suspect]
     Route: 062
     Dates: start: 20120301
  7. DURAGESIC-100 [Suspect]
     Route: 062
     Dates: start: 20120301
  8. DURAGESIC-100 [Suspect]
     Indication: MUSCULOSKELETAL PAIN
     Route: 062
     Dates: start: 20120301
  9. DURAGESIC-100 [Suspect]
     Indication: BACK PAIN
     Route: 062
     Dates: start: 20120301
  10. DURAGESIC-100 [Suspect]
     Indication: ARTHRALGIA
     Route: 062
     Dates: start: 20110101, end: 20110101
  11. DURAGESIC-100 [Suspect]
     Route: 062
     Dates: start: 20120301
  12. DURAGESIC-100 [Suspect]
     Route: 062
     Dates: start: 20110101, end: 20110101
  13. DURAGESIC-100 [Suspect]
     Route: 062
     Dates: start: 20120301

REACTIONS (5)
  - WRONG TECHNIQUE IN DRUG USAGE PROCESS [None]
  - INCORRECT DRUG ADMINISTRATION DURATION [None]
  - PRODUCT QUALITY ISSUE [None]
  - THERAPEUTIC RESPONSE DECREASED [None]
  - DRUG EFFECT DECREASED [None]
